FAERS Safety Report 5332388-1 (Version None)
Quarter: 2007Q2

REPORT INFORMATION
  Report Type: 
  Country: None (occurrence: None)
  Receive Date: 20070523
  Receipt Date: 20070516
  Transmission Date: 20071010
  Serious: Yes (Other)
  Sender: FDA-Public Use
  Company Number: D0053131A

PATIENT
  Age: 55 Year
  Sex: Male
  Weight: 80 kg

DRUGS (7)
  1. ARIXTRA [Suspect]
     Dosage: 7.5MG PER DAY
     Route: 058
     Dates: start: 20050801
  2. PANTOZOL [Suspect]
     Indication: GASTRITIS
     Dosage: 40MG PER DAY
     Route: 048
     Dates: start: 20040801
  3. METOCLOPRAMIDE [Concomitant]
     Indication: GASTRITIS
     Dosage: 20DROP AS REQUIRED
     Route: 048
     Dates: start: 20050401
  4. LOCOL [Concomitant]
     Dosage: 20MG PER DAY
     Route: 048
     Dates: start: 20040801
  5. SIMVASTATIN [Concomitant]
     Dosage: 20MG PER DAY
     Route: 048
     Dates: start: 20040801
  6. MARCUMAR [Concomitant]
     Route: 048
     Dates: end: 20041201
  7. CLEXANE [Concomitant]
     Dosage: .8ML TWICE PER DAY
     Route: 058
     Dates: start: 20050101, end: 20050801

REACTIONS (3)
  - GYNAECOMASTIA [None]
  - PITUITARY TUMOUR BENIGN [None]
  - PROLACTINOMA [None]
